FAERS Safety Report 6444116-7 (Version None)
Quarter: 2009Q4

REPORT INFORMATION
  Report Type: 
  Country: None (occurrence: None)
  Receive Date: 20091118
  Receipt Date: 20091109
  Transmission Date: 20100525
  Serious: Yes (Other)
  Sender: FDA-Public Use
  Company Number: CA-JNJFOC-20091005200

PATIENT
  Sex: Female
  Weight: 72.58 kg

DRUGS (5)
  1. TYLENOL W/ CODEINE NO. 3 [Suspect]
     Indication: PAIN
     Route: 065
     Dates: start: 20090610
  2. AMLODIPINE [Concomitant]
     Route: 048
  3. ARTHROTEC [Concomitant]
     Route: 048
  4. HYDROCHLOROTHIAZIDE [Concomitant]
     Dosage: 3 MONTHS
     Route: 048
  5. CRESTOR [Concomitant]
     Indication: BLOOD CHOLESTEROL
     Route: 065

REACTIONS (1)
  - DIABETES MELLITUS [None]
